FAERS Safety Report 5483121-4 (Version None)
Quarter: 2007Q4

REPORT INFORMATION
  Report Type: 
  Country: None (occurrence: None)
  Receive Date: 20071011
  Receipt Date: 20071002
  Transmission Date: 20080405
  Serious: Yes (Hospitalization)
  Sender: FDA-Public Use
  Company Number: JP-ABBOTT-07P-087-0419124-00

PATIENT
  Age: 4 Year
  Sex: Female

DRUGS (1)
  1. CEFZON GRANULES [Suspect]
     Indication: DRUG USE FOR UNKNOWN INDICATION
     Dates: start: 20070901, end: 20070901

REACTIONS (3)
  - INFECTION [None]
  - PLATELET COUNT DECREASED [None]
  - PYREXIA [None]
